FAERS Safety Report 5449638-3 (Version None)
Quarter: 2007Q3

REPORT INFORMATION
  Report Type: 
  Country: None (occurrence: None)
  Receive Date: 20070912
  Receipt Date: 20070906
  Transmission Date: 20080115
  Serious: Yes (Hospitalization)
  Sender: FDA-Public Use
  Company Number: PHNU2007DE03081

PATIENT
  Age: 80 Year
  Sex: Female

DRUGS (3)
  1. EXFORGE [Suspect]
     Indication: HYPERTENSION
     Dosage: UNK, UNK
     Route: 048
     Dates: start: 20070801
  2. CALCIUM [Concomitant]
  3. MAGNESIUM SULFATE [Concomitant]

REACTIONS (1)
  - VENTRICULAR EXTRASYSTOLES [None]
